FAERS Safety Report 14319704 (Version 1)
Quarter: 2017Q4

REPORT INFORMATION
  Report Type: Spontaneous
  Country: US (occurrence: US)
  Receive Date: 20171222
  Receipt Date: 20171222
  Transmission Date: 20180321
  Serious: Yes (Death)
  Sender: FDA-Public Use
  Company Number: US-TEVA-2017-US-835265

PATIENT
  Age: 56 Year
  Sex: Male

DRUGS (2)
  1. BACLOFEN. [Suspect]
     Active Substance: BACLOFEN
     Dosage: 30 MILLIGRAM DAILY;
     Route: 048
  2. BACLOFEN. [Suspect]
     Active Substance: BACLOFEN
     Indication: HICCUPS
     Dosage: 15 MILLIGRAM DAILY;
     Route: 048

REACTIONS (6)
  - Cardiac arrest [Fatal]
  - Neurotoxicity [Fatal]
  - Hepatorenal syndrome [Fatal]
  - Pulseless electrical activity [Fatal]
  - Toxicity to various agents [Fatal]
  - Fungal infection [Fatal]
